FAERS Safety Report 6862955-5 (Version None)
Quarter: 2010Q3

REPORT INFORMATION
  Report Type: 
  Country: None (occurrence: None)
  Receive Date: 20100721
  Receipt Date: 20100709
  Transmission Date: 20110219
  Serious: Yes (Other)
  Sender: FDA-Public Use
  Company Number: FR-PFIZER INC-2010088536

PATIENT
  Age: 74 Year
  Sex: Female

DRUGS (2)
  1. HYDROXYZINE HCL [Suspect]
     Dosage: 100 MG, AT 8 PM
     Route: 048
  2. PRAMIPEXOLE [Concomitant]
     Indication: RESTLESS LEGS SYNDROME
     Dosage: 0.09 MG AT 6PM AND 0.18 MG AT 10PM

REACTIONS (1)
  - RESTLESS LEGS SYNDROME [None]
